FAERS Safety Report 7400577-8 (Version None)
Quarter: 2011Q2

REPORT INFORMATION
  Report Type: 
  Country: None (occurrence: None)
  Receive Date: 20110407
  Receipt Date: 20110401
  Transmission Date: 20111010
  Serious: Yes (Other)
  Sender: FDA-Public Use
  Company Number: US-PFIZER INC-2011033681

PATIENT
  Sex: Male
  Weight: 92 kg

DRUGS (7)
  1. AMBIEN [Concomitant]
     Indication: INSOMNIA
     Dosage: UP TO 10 MG, AS NEEDED
  2. XALATAN [Suspect]
     Indication: INTRAOCULAR PRESSURE INCREASED
     Dosage: ONE DROP TO RIGHT EYE, ONCE DAILY
     Route: 047
     Dates: start: 20110104, end: 20110208
  3. XALATAN [Suspect]
     Indication: GLAUCOMA
  4. WARFARIN [Concomitant]
     Indication: ATRIAL FIBRILLATION
     Dosage: 2 MG
  5. ACETYLSALICYLIC ACID [Concomitant]
     Indication: ANTICOAGULANT THERAPY
     Dosage: 81 MG
  6. COREG [Concomitant]
     Indication: CARDIAC DISORDER
     Dosage: 6.25 MG, 2X/DAY
  7. LISINOPRIL [Concomitant]
     Indication: CARDIAC DISORDER
     Dosage: 20 MG, SPLIT , 2X/DAY

REACTIONS (2)
  - VISUAL IMPAIRMENT [None]
  - VISION BLURRED [None]
